FAERS Safety Report 24646397 (Version 1)
Quarter: 2024Q4

REPORT INFORMATION
  Report Type: Spontaneous
  Country: MY (occurrence: MY)
  Receive Date: 20241121
  Receipt Date: 20241121
  Transmission Date: 20250114
  Serious: Yes (Death, Hospitalization, Disabling, Other)
  Sender: IPCA
  Company Number: MY-IPCA LABORATORIES LIMITED-IPC-2024-MY-002699

PATIENT

DRUGS (2)
  1. WARFARIN SODIUM [Suspect]
     Active Substance: WARFARIN SODIUM
     Indication: Product used for unknown indication
     Dosage: 3.5 MILLIGRAM
     Route: 065
  2. WARFARIN SODIUM [Suspect]
     Active Substance: WARFARIN SODIUM
     Dosage: 4 MILLIGRAM
     Route: 065

REACTIONS (12)
  - Spinal cord haemorrhage [Fatal]
  - Paraplegia [Fatal]
  - Respiratory tract infection [Fatal]
  - Overdose [Fatal]
  - Extradural haematoma [Unknown]
  - Back pain [Unknown]
  - Spinal cord compression [Unknown]
  - Spinal stenosis [Unknown]
  - Sensorimotor disorder [Unknown]
  - Neurogenic bladder [Unknown]
  - Gastrointestinal disorder [Unknown]
  - International normalised ratio [Unknown]
